FAERS Safety Report 24988821 (Version 2)
Quarter: 2025Q1

REPORT INFORMATION
  Report Type: Spontaneous
  Country: JP (occurrence: JP)
  Receive Date: 20250220
  Receipt Date: 20250317
  Transmission Date: 20250409
  Serious: Yes (Hospitalization)
  Sender: ROCHE
  Company Number: JP-CHUGAI-2025004689

PATIENT
  Age: 8 Decade
  Sex: Male

DRUGS (2)
  1. ACTEMRA [Suspect]
     Active Substance: TOCILIZUMAB
     Indication: COVID-19 pneumonia
     Route: 042
     Dates: start: 2024
  2. PREDONINE [Suspect]
     Active Substance: PREDNISOLONE
     Indication: COVID-19 pneumonia
     Route: 065

REACTIONS (2)
  - Klebsiella bacteraemia [Recovered/Resolved]
  - Cellulitis [Recovered/Resolved]

NARRATIVE: CASE EVENT DATE: 20240101
